FAERS Safety Report 7403852-6 (Version None)
Quarter: 2011Q2

REPORT INFORMATION
  Report Type: 
  Country: None (occurrence: None)
  Receive Date: 20110401
  Receipt Date: 20110322
  Transmission Date: 20111010
  Serious: Yes (Other)
  Sender: FDA-Public Use
  Company Number: 029795

PATIENT
  Age: 81 Year
  Sex: Female

DRUGS (3)
  1. DEPAKENE /00228502/ [Concomitant]
  2. KEPPRA [Suspect]
     Dosage: (1000 MG QD)
     Dates: start: 20110317, end: 20110318
  3. LAMICTAL [Concomitant]

REACTIONS (1)
  - DRUG ERUPTION [None]
